FAERS Safety Report 7276202-6 (Version None)
Quarter: 2011Q1

REPORT INFORMATION
  Report Type: 
  Country: None (occurrence: None)
  Receive Date: 20110204
  Receipt Date: 20110127
  Transmission Date: 20110831
  Serious: Yes (Other)
  Sender: FDA-Public Use
  Company Number: PHHY2010US89560

PATIENT
  Sex: Female

DRUGS (5)
  1. AMITRIPTYLINE HCL [Concomitant]
     Dosage: 100 MG, QD
  2. GABAPENTIN [Concomitant]
     Dosage: 900 MG, TID
  3. NAPROXEN [Concomitant]
     Dosage: 500 MG, BID
  4. EXTAVIA [Suspect]
     Indication: MULTIPLE SCLEROSIS
     Dosage: 0.187 MG, QOD
     Route: 058
     Dates: start: 20101130
  5. EXTAVIA [Suspect]
     Dosage: 0.25 MG, QOD
     Route: 058

REACTIONS (5)
  - GAIT DISTURBANCE [None]
  - INJECTION SITE HAEMATOMA [None]
  - INJECTION SITE PRURITUS [None]
  - FALL [None]
  - INJECTION SITE PAIN [None]
